FAERS Safety Report 4870265-0 (Version None)
Quarter: 2005Q4

REPORT INFORMATION
  Report Type: 
  Country: None (occurrence: None)
  Receive Date: 20051228
  Receipt Date: 20051207
  Transmission Date: 20060501
  Serious: Yes (Death, Hospitalization, Other)
  Sender: FDA-Public Use
  Company Number: JP200512001440

PATIENT
  Age: 68 Year
  Sex: Male

DRUGS (1)
  1. GEMZAR [Suspect]
     Indication: PANCREATIC CARCINOMA
     Dosage: SEE IMAGE, INTRAVENOUS
     Route: 042

REACTIONS (7)
  - DISEASE RECURRENCE [None]
  - HEPATORENAL FAILURE [None]
  - MALAISE [None]
  - MALIGNANT ASCITES [None]
  - OBSTRUCTION [None]
  - RED BLOOD CELL COUNT DECREASED [None]
  - THERAPEUTIC RESPONSE DECREASED [None]
